FAERS Safety Report 4457873-6 (Version None)
Quarter: 2004Q3

REPORT INFORMATION
  Report Type: 
  Country: None (occurrence: None)
  Receive Date: 20040924
  Receipt Date: 20040601
  Transmission Date: 20050211
  Serious: Yes (Other)
  Sender: FDA-Public Use
  Company Number: PHBS2004JP07313

PATIENT
  Age: 37 Year
  Sex: Female
  Weight: 28 kg

DRUGS (10)
  1. TEGRETOL [Suspect]
     Indication: EPILEPSY
     Dosage: 200 MG/DAY
     Route: 048
  2. PURSENNID [Concomitant]
     Dosage: 72 MG
     Route: 048
  3. LEVOCARNITINE [Concomitant]
     Dosage: 200 MG
     Route: 048
  4. GASTER D [Concomitant]
     Dosage: 40 MG
     Route: 048
  5. TANKARU [Concomitant]
     Dosage: 1.5 G
     Route: 048
  6. SORBIT HARTMAN [Concomitant]
     Dosage: 120 ML
     Route: 048
  7. KAMAG G [Concomitant]
     Dosage: 3 G
     Route: 048
  8. KAYEXALATE [Concomitant]
     Dosage: 5 G
     Route: 048
  9. ACARDI [Concomitant]
     Dosage: 1.25 MG
     Route: 048
  10. DIGOSIN [Concomitant]
     Dosage: 0.1 MG
     Route: 048

REACTIONS (3)
  - HOT FLUSH [None]
  - HYPERPROLACTINAEMIA [None]
  - PITUITARY TUMOUR BENIGN [None]
